FAERS Safety Report 11100476 (Version 2)
Quarter: 2016Q2

REPORT INFORMATION
  Report Type: Spontaneous
  Country: US (occurrence: US)
  Receive Date: 20150508
  Receipt Date: 20160512
  Transmission Date: 20160815
  Serious: Yes (Other)
  Sender: FDA-Public Use
  Company Number: US-UCBSA-2015013546

PATIENT

DRUGS (1)
  1. CIMZIA [Suspect]
     Active Substance: CERTOLIZUMAB PEGOL
     Indication: PRODUCT USED FOR UNKNOWN INDICATION
     Dosage: UNK

REACTIONS (7)
  - Arthralgia [Unknown]
  - Muscular weakness [Unknown]
  - Thyroid mass [Unknown]
  - Ear discomfort [Unknown]
  - Ear pain [Unknown]
  - Abdominal pain [Unknown]
  - Cystitis [Unknown]
